FAERS Safety Report 19521212 (Version 1)
Quarter: 2021Q3

REPORT INFORMATION
  Report Type: Spontaneous
  Country: FR (occurrence: FR)
  Receive Date: 20210712
  Receipt Date: 20210712
  Transmission Date: 20211014
  Serious: Yes (Other)
  Sender: FDA-Public Use
  Company Number: FR-MYLANLABS-2021M1041364

PATIENT
  Age: 55 Year
  Sex: Male
  Weight: 65 kg

DRUGS (1)
  1. VANCOMYCIN [Suspect]
     Active Substance: VANCOMYCIN
     Indication: ENDOCARDITIS
     Dosage: 2 GRAM, Q8H
     Route: 042
     Dates: start: 20210301, end: 20210304

REACTIONS (5)
  - Product prescribing error [Recovered/Resolved]
  - Incorrect dose administered [Recovered/Resolved]
  - Pyrexia [Recovered/Resolved]
  - Lymphangitis [Recovered/Resolved]
  - Hypotension [Recovered/Resolved]

NARRATIVE: CASE EVENT DATE: 202103
